FAERS Safety Report 21129033 (Version 1)
Quarter: 2022Q3

REPORT INFORMATION
  Report Type: Spontaneous
  Country: DE (occurrence: DE)
  Receive Date: 20220725
  Receipt Date: 20220725
  Transmission Date: 20221026
  Serious: Yes (Hospitalization, Other)
  Sender: FDA-Public Use
  Company Number: DE-SA-2022SA293236

PATIENT
  Age: 79 Year
  Sex: Male

DRUGS (5)
  1. DUPILUMAB [Suspect]
     Active Substance: DUPILUMAB
     Indication: Dermatitis atopic
     Dosage: UNK
  2. PREDNISOLONE [Concomitant]
     Active Substance: PREDNISOLONE
     Indication: Dermatitis atopic
     Dosage: 6 MG
  3. ATORVASTATIN [Concomitant]
     Active Substance: ATORVASTATIN
     Indication: Hyperlipidaemia
     Dosage: UNK
  4. PREGABALIN [Concomitant]
     Active Substance: PREGABALIN
     Indication: Neuralgia
  5. TAMSULOSIN [Concomitant]
     Active Substance: TAMSULOSIN
     Indication: Prostatic adenoma

REACTIONS (13)
  - Sarcoid-like reaction [Recovered/Resolved]
  - Burning sensation [Recovered/Resolved]
  - Hallucination, visual [Recovered/Resolved]
  - Disorientation [Recovered/Resolved]
  - Aphasia [Recovered/Resolved]
  - Cognitive disorder [Recovered/Resolved]
  - Aggression [Recovered/Resolved]
  - Hypertonia [Recovered/Resolved]
  - Abnormal behaviour [Recovered/Resolved]
  - Brain oedema [Recovered/Resolved]
  - Encephalopathy [Recovered/Resolved]
  - Meningitis [Recovered/Resolved]
  - Pleocytosis [Recovered/Resolved]
